FAERS Safety Report 14112986 (Version 3)
Quarter: 2017Q4

REPORT INFORMATION
  Report Type: Report from Study
  Country: None (occurrence: US)
  Receive Date: 20171022
  Receipt Date: 20171212
  Transmission Date: 20180321
  Serious: Yes (Other)
  Sender: FDA-Public Use
  Company Number: US-ABBVIE-17K-163-2133335-00

PATIENT
  Age: 20 Year
  Sex: Male
  Weight: 68.1 kg

DRUGS (1)
  1. HUMIRA [Suspect]
     Active Substance: ADALIMUMAB
     Indication: CROHN^S DISEASE
     Route: 058
     Dates: start: 20170719, end: 20171129

REACTIONS (12)
  - Injection site swelling [Recovering/Resolving]
  - Wound dehiscence [Unknown]
  - Injection site warmth [Recovering/Resolving]
  - Pyrexia [Unknown]
  - Injection site erythema [Recovering/Resolving]
  - Laceration [Unknown]
  - Hypoaesthesia [Unknown]
  - Injection site reaction [Unknown]
  - Sinusitis [Unknown]
  - Oropharyngeal pain [Unknown]
  - Accident at work [Unknown]
  - Injection site pain [Recovering/Resolving]

NARRATIVE: CASE EVENT DATE: 2017
